FAERS Safety Report 4749893-9 (Version None)
Quarter: 2005Q3

REPORT INFORMATION
  Report Type: 
  Country: None (occurrence: None)
  Receive Date: 20050822
  Receipt Date: 20050808
  Transmission Date: 20060218
  Serious: Yes (Death)
  Sender: FDA-Public Use
  Company Number: 2004218467NO

PATIENT
  Age: 77 Year
  Sex: Male

DRUGS (12)
  1. CLINDAMYCIN HCL [Suspect]
     Indication: SEPSIS
     Dosage: 1350 MG (450 MG, TID), ORAL
     Route: 048
     Dates: start: 20040328, end: 20040409
  2. NEXIUM [Suspect]
     Indication: DUODENAL ULCER HAEMORRHAGE
     Dosage: 40 MG (40 MG, QD), ORAL
     Route: 048
     Dates: start: 20040326, end: 20040416
  3. SELEXID (PIVMECILLINAM HYDROCHLORIDE) [Suspect]
     Indication: URINARY TRACT INFECTION
     Dosage: 600 MG (200 MG, TID), ORAL
     Route: 048
     Dates: start: 20040401
  4. FUROSEMIDE [Concomitant]
  5. PRAVACHOL [Concomitant]
  6. RAMIPRIL [Concomitant]
  7. GLUCOPHAGE [Concomitant]
  8. IMDUR [Concomitant]
  9. MINDIAB (GLIPIZIDE) [Concomitant]
  10. PREDNISOLONE [Concomitant]
  11. CIPROFLOXACIN [Concomitant]
  12. SELO-ZOK (METOPROLOL SUCCINATE) [Concomitant]

REACTIONS (8)
  - ANURIA [None]
  - CEREBRAL INFARCTION [None]
  - CLOSTRIDIUM COLITIS [None]
  - CORONARY ARTERY THROMBOSIS [None]
  - GENERAL PHYSICAL HEALTH DETERIORATION [None]
  - METABOLIC ACIDOSIS [None]
  - TOXIC EPIDERMAL NECROLYSIS [None]
  - VARICOSE ULCERATION [None]
